FAERS Safety Report 5311847-1 (Version None)
Quarter: 2007Q2

REPORT INFORMATION
  Report Type: 
  Country: None (occurrence: None)
  Receive Date: 20070427
  Receipt Date: 20070427
  Transmission Date: 20071010
  Serious: Yes (Hospitalization)
  Sender: FDA-Public Use
  Company Number: None

PATIENT
  Sex: Male

DRUGS (3)
  1. FLUDARABINE PHOSPHATE [Suspect]
     Indication: STEM CELL TRANSPLANT
     Dosage: 55 MG   ONCE A DAY   IV DRIP
     Route: 041
     Dates: start: 20070122, end: 20070126
  2. CAMPATH [Suspect]
     Indication: STEM CELL TRANSPLANT
     Dosage: 20 MG  ONCE A DAY   IV DRIP
     Route: 041
     Dates: start: 20070122, end: 20070126
  3. BUSULFAN [Suspect]
     Dosage: 326MG X 2 AND 585 X 2 DAYS   ONCE A DAY  IV DRIP
     Route: 041
     Dates: start: 20070123, end: 20070126

REACTIONS (11)
  - ASCITES [None]
  - GALLBLADDER DISORDER [None]
  - GRAFT VERSUS HOST DISEASE [None]
  - HEPATIC LESION [None]
  - HEPATOMEGALY [None]
  - LIVER FUNCTION TEST ABNORMAL [None]
  - LYMPHADENOPATHY [None]
  - PELVIC FLUID COLLECTION [None]
  - RETROPERITONEAL LYMPHADENOPATHY [None]
  - SPLENOMEGALY [None]
  - VENOOCCLUSIVE LIVER DISEASE [None]
